FAERS Safety Report 12206251 (Version 1)
Quarter: 2016Q1

REPORT INFORMATION
  Report Type: Spontaneous
  Country: NL (occurrence: US)
  Receive Date: 20160324
  Receipt Date: 20160324
  Transmission Date: 20160526
  Serious: Yes (Other)
  Sender: FDA-Public Use
  Company Number: NL-SCIEGEN PHARMACEUTICALS INC-2016SCILIT00040

PATIENT
  Age: 43 Year
  Sex: Female

DRUGS (2)
  1. SORAFENIB [Suspect]
     Active Substance: SORAFENIB
     Indication: NON-SMALL CELL LUNG CANCER STAGE IV
     Dosage: 400 MG, BID
     Route: 065
  2. METFORMIN [Suspect]
     Active Substance: METFORMIN HYDROCHLORIDE
     Indication: NON-SMALL CELL LUNG CANCER STAGE IV
     Dosage: 1000 MG, BID
     Route: 065

REACTIONS (3)
  - Lymphangiosis carcinomatosa [Recovering/Resolving]
  - Pleural effusion [Recovering/Resolving]
  - Malignant neoplasm of thorax [Recovering/Resolving]
